FAERS Safety Report 19588223 (Version 1)
Quarter: 2021Q3

REPORT INFORMATION
  Report Type: Spontaneous
  Country: US (occurrence: US)
  Receive Date: 20210721
  Receipt Date: 20210721
  Transmission Date: 20211014
  Serious: Yes (Other)
  Sender: FDA-Public Use
  Company Number: US-GLAXOSMITHKLINE-US2021GSK154404

PATIENT
  Sex: Male

DRUGS (2)
  1. RANITIDINE. [Suspect]
     Active Substance: RANITIDINE
     Indication: PROSTATIC SPECIFIC ANTIGEN INCREASED
     Dosage: UNK, QD
     Route: 065
     Dates: start: 201607, end: 202011
  2. RANITIDINE. [Suspect]
     Active Substance: RANITIDINE
     Indication: PROSTATIC SPECIFIC ANTIGEN INCREASED
     Dosage: UNK, QD
     Route: 065
     Dates: start: 201607, end: 202011

REACTIONS (1)
  - Prostate cancer [Unknown]
